FAERS Safety Report 26151029 (Version 2)
Quarter: 2025Q4

REPORT INFORMATION
  Report Type: Report from Study
  Country: GB (occurrence: GB)
  Receive Date: 20251212
  Receipt Date: 20251214
  Transmission Date: 20260118
  Serious: Yes (Hospitalization, Other)
  Sender: BAUSCH AND LOMB
  Company Number: GB-BAUSCH-BH-2025-017833

PATIENT
  Age: 55 Year
  Sex: Male

DRUGS (1)
  1. BRODALUMAB [Suspect]
     Active Substance: BRODALUMAB
     Indication: Psoriasis
     Route: 058
     Dates: start: 201903

REACTIONS (3)
  - Pulmonary oedema [Unknown]
  - Lower respiratory tract infection [Unknown]
  - Therapy interrupted [Unknown]
